FAERS Safety Report 18747112 (Version 1)
Quarter: 2021Q1

REPORT INFORMATION
  Report Type: Spontaneous
  Country: US (occurrence: US)
  Receive Date: 20210115
  Receipt Date: 20210115
  Transmission Date: 20210419
  Serious: Yes (Hospitalization, Other)
  Sender: FDA-Public Use
  Company Number: US-009507513-2101USA005787

PATIENT
  Sex: Female
  Weight: 76.2 kg

DRUGS (7)
  1. DONEPEZIL. [Concomitant]
     Active Substance: DONEPEZIL
     Dosage: UNK
  2. AZILECT [Concomitant]
     Active Substance: RASAGILINE MESYLATE
     Dosage: UNK
  3. RYTARY [Concomitant]
     Active Substance: CARBIDOPA\LEVODOPA
     Dosage: UNK
  4. AMANTADINE. [Concomitant]
     Active Substance: AMANTADINE HYDROCHLORIDE
     Dosage: UNK
  5. PROBIOTICS (UNSPECIFIED) [Concomitant]
     Active Substance: PROBIOTICS NOS
     Dosage: UNK
  6. SINEMET [Suspect]
     Active Substance: CARBIDOPA\LEVODOPA
     Indication: PARKINSON^S DISEASE
     Dosage: 12.5 MILLIGRAM, TID
     Route: 048
     Dates: start: 2009
  7. MIRAPEX [Concomitant]
     Active Substance: PRAMIPEXOLE DIHYDROCHLORIDE
     Dosage: UNK

REACTIONS (10)
  - Speech disorder [Not Recovered/Not Resolved]
  - Cognitive disorder [Not Recovered/Not Resolved]
  - Product storage error [Unknown]
  - Adverse event [Not Recovered/Not Resolved]
  - Gait disturbance [Not Recovered/Not Resolved]
  - Drug hypersensitivity [Not Recovered/Not Resolved]
  - Dystonia [Not Recovered/Not Resolved]
  - Incorrect dose administered [Unknown]
  - Wrong technique in product usage process [Unknown]
  - Product physical issue [Unknown]
